FAERS Safety Report 5158285-2 (Version None)
Quarter: 2006Q4

REPORT INFORMATION
  Report Type: 
  Country: None (occurrence: None)
  Receive Date: 20061117
  Receipt Date: 20061109
  Transmission Date: 20070319
  Serious: Yes (Hospitalization, Other)
  Sender: FDA-Public Use
  Company Number: FRWYE772324AUG06

PATIENT
  Age: 13 Year
  Sex: Female

DRUGS (4)
  1. ADVIL [Suspect]
     Indication: PYREXIA
     Dosage: 200 MG 1X PER 1 DAY ORAL
     Route: 048
     Dates: start: 20060629, end: 20060701
  2. ADVIL [Suspect]
     Indication: VARICELLA
     Dosage: 200 MG 1X PER 1 DAY ORAL
     Route: 048
     Dates: start: 20060629, end: 20060701
  3. JOSACINE (JOSAMYCIN) [Concomitant]
  4. TINSET (OXATOMIDE) [Concomitant]

REACTIONS (5)
  - BACK PAIN [None]
  - CONDITION AGGRAVATED [None]
  - DYSPHAGIA [None]
  - IMPETIGO [None]
  - VARICELLA [None]
